FAERS Safety Report 12644768 (Version 2)
Quarter: 2016Q4

REPORT INFORMATION
  Report Type: Spontaneous
  Country: US (occurrence: US)
  Receive Date: 20160811
  Receipt Date: 20161109
  Transmission Date: 20170207
  Serious: No
  Sender: FDA-Public Use
  Company Number: US-PFIZER INC-2016351992

PATIENT
  Age: 50 Year
  Sex: Male
  Weight: 92 kg

DRUGS (3)
  1. MOTRIN [Concomitant]
     Active Substance: IBUPROFEN
     Indication: HEADACHE
     Dosage: 80 MG, 2X/DAY
     Route: 048
  2. VIAGRA [Suspect]
     Active Substance: SILDENAFIL CITRATE
     Indication: ERECTILE DYSFUNCTION
     Dosage: 50 MG, AS NEEDED
     Route: 048
     Dates: start: 20160616
  3. MOTRIN [Concomitant]
     Active Substance: IBUPROFEN
     Indication: BACK PAIN

REACTIONS (2)
  - Expired product administered [Unknown]
  - Drug ineffective [Unknown]
